FAERS Safety Report 8310176-1 (Version None)
Quarter: 2012Q2

REPORT INFORMATION
  Report Type: 
  Country: None (occurrence: None)
  Receive Date: 20120425
  Receipt Date: 20120417
  Transmission Date: 20120825
  Serious: Yes (Hospitalization, Other)
  Sender: FDA-Public Use
  Company Number: US-BAYER-2012-015869

PATIENT
  Age: 18 Year
  Sex: Female
  Weight: 75 kg

DRUGS (2)
  1. YAZ [Suspect]
     Indication: CONTRACEPTION
     Dosage: UNK
     Route: 048
     Dates: start: 20100201, end: 20100801
  2. YAZ [Suspect]
     Indication: MENSTRUATION IRREGULAR

REACTIONS (2)
  - BILIARY DYSKINESIA [None]
  - ABDOMINAL PAIN [None]
